FAERS Safety Report 6085533-7 (Version None)
Quarter: 2009Q1

REPORT INFORMATION
  Report Type: 
  Country: None (occurrence: None)
  Receive Date: 20090220
  Receipt Date: 20090217
  Transmission Date: 20090719
  Serious: Yes (Death)
  Sender: FDA-Public Use
  Company Number: JP-AVENTIS-200813444JP

PATIENT
  Age: 70 Year
  Sex: Female

DRUGS (5)
  1. TAXOTERE [Suspect]
     Indication: OVARIAN CANCER
     Dosage: DOSE: 120/TOTAL
  2. CARBOPLATIN [Suspect]
     Indication: OVARIAN CANCER
     Dosage: DOSE: 6800/TOTAL
  3. PACLITAXEL [Suspect]
     Indication: OVARIAN CANCER
     Dosage: DOSE: 5100/TOTAL
  4. CYCLOPHOSPHAMIDE [Suspect]
     Indication: OVARIAN CANCER
     Dosage: DOSE: 1000/TOTAL
  5. EPIRUBICIN [Suspect]
     Indication: OVARIAN CANCER
     Dosage: DOSE: 140/TOTAL

REACTIONS (1)
  - LEUKAEMIA [None]
